FAERS Safety Report 16317901 (Version 1)
Quarter: 2019Q2

REPORT INFORMATION
  Report Type: Spontaneous
  Country: SE (occurrence: SE)
  Receive Date: 20190516
  Receipt Date: 20190516
  Transmission Date: 20190711
  Serious: Yes (Other)
  Sender: FDA-Public Use
  Company Number: SE-TEVA-2019-SE-1049684

PATIENT
  Age: 89 Year
  Sex: Female

DRUGS (9)
  1. ENALAPRIL [Concomitant]
     Active Substance: ENALAPRIL
  2. ALENAT VECKOTABLETT  70 MG TABLETT [Suspect]
     Active Substance: ALENDRONATE SODIUM
     Dates: end: 20190323
  3. PREDNISOLONE. [Concomitant]
     Active Substance: PREDNISOLONE
  4. WARAN [Concomitant]
     Active Substance: WARFARIN SODIUM
  5. TRIOBE [Concomitant]
  6. KALCIPOS-D FORTE [Concomitant]
     Active Substance: CALCIUM CARBONATE\CHOLECALCIFEROL
  7. SELOKENZOC [Concomitant]
     Active Substance: METOPROLOL SUCCINATE
  8. ALVEDON [Concomitant]
     Active Substance: ACETAMINOPHEN
  9. FURIX RETARD [Concomitant]
     Active Substance: FUROSEMIDE

REACTIONS (1)
  - Osteitis [Not Recovered/Not Resolved]

NARRATIVE: CASE EVENT DATE: 20190324
